FAERS Safety Report 20671991 (Version 1)
Quarter: 2022Q2

REPORT INFORMATION
  Report Type: Spontaneous
  Country: ES (occurrence: ES)
  Receive Date: 20220405
  Receipt Date: 20220405
  Transmission Date: 20220720
  Serious: Yes (Hospitalization)
  Sender: FDA-Public Use
  Company Number: ES-SUN PHARMACEUTICAL INDUSTRIES LTD-2022RR-331614

PATIENT
  Age: 89 Year
  Sex: Female

DRUGS (7)
  1. CIPROFLOXACIN [Suspect]
     Active Substance: CIPROFLOXACIN
     Indication: Urinary tract infection
     Dosage: 500.0 MG C/12 H
     Route: 048
     Dates: start: 20200929, end: 20201004
  2. LORMETAZEPAM NORMON 1 mg COMPRIMIDOS EFG, 30 comprimidos [Concomitant]
     Indication: Insomnia
     Dosage: 1.0 MG C/24 H NIGHT
     Route: 048
     Dates: start: 20190215
  3. OMEPRAZOL PENSA 20 mg CAPSULAS DURAS GASTRORRESISTENTES EFG , 56 ca.. [Concomitant]
     Indication: Gastrooesophageal reflux disease
     Dosage: 20.0 MG A-DECE
     Route: 048
     Dates: start: 20141029
  4. CLAVERSAL 500 mg COMPRIMIDOS GASTRORRESISTENTES , 100 comprimidos [Concomitant]
     Indication: Colitis
     Dosage: 1500.0 MG DE
     Route: 048
     Dates: start: 20190211
  5. PALEXIA RETARD 50 mg COMPRIMIDOS DE LIBERACION PROLONGADA, 60 compr... [Concomitant]
     Indication: Kyphoscoliosis
     Dosage: 50.0 MG C/12 H
     Route: 048
     Dates: start: 20190604
  6. LYRICA 150 MG CAPSULAS DURAS, 56 capsulas [Concomitant]
     Indication: Product used for unknown indication
     Dosage: 150.0 MG DECE
     Route: 048
     Dates: start: 20191128
  7. LYRICA [Concomitant]
     Active Substance: PREGABALIN
     Indication: Spinal osteoarthritis
     Dosage: 75.0 MG C/12 H
     Route: 048
     Dates: start: 20191128

REACTIONS (1)
  - Toxic skin eruption [Recovered/Resolved]

NARRATIVE: CASE EVENT DATE: 20201009
